FAERS Safety Report 12384169 (Version 1)
Quarter: 2016Q2

REPORT INFORMATION
  Report Type: Spontaneous
  Country: US (occurrence: US)
  Receive Date: 20160519
  Receipt Date: 20160519
  Transmission Date: 20160815
  Serious: No
  Sender: FDA-Public Use
  Company Number: US-ASTRAZENECA-2016SE38474

PATIENT
  Age: 22819 Day
  Sex: Male
  Weight: 131.5 kg

DRUGS (2)
  1. BYDUREON [Suspect]
     Active Substance: EXENATIDE
     Indication: TYPE 2 DIABETES MELLITUS
     Route: 058
     Dates: start: 20160316
  2. COUMADIN [Concomitant]
     Active Substance: WARFARIN SODIUM

REACTIONS (5)
  - Circumstance or information capable of leading to medication error [Unknown]
  - Injection site pain [Unknown]
  - Intentional product misuse [Unknown]
  - Rash [Unknown]
  - Injection site nodule [Unknown]

NARRATIVE: CASE EVENT DATE: 20160330
